FAERS Safety Report 26034067 (Version 1)
Quarter: 2025Q4

REPORT INFORMATION
  Report Type: Spontaneous
  Country: US (occurrence: None)
  Receive Date: 20251111
  Receipt Date: 20251111
  Transmission Date: 20260118
  Serious: Yes (Death)
  Sender: FDA-CTU
  Company Number: None

PATIENT
  Age: 61 Year
  Sex: Female

DRUGS (1)
  1. ADBRY [Suspect]
     Active Substance: TRALOKINUMAB-LDRM
     Indication: Asthma
     Dosage: 2 ML EVERY OTHER WEEK SUBCUTANEOUS
     Route: 058
     Dates: start: 20240815

REACTIONS (1)
  - Death [None]

NARRATIVE: CASE EVENT DATE: 20251008
